FAERS Safety Report 4563664-8 (Version None)
Quarter: 2005Q1

REPORT INFORMATION
  Report Type: 
  Country: None (occurrence: None)
  Receive Date: 20050121
  Receipt Date: 20050111
  Transmission Date: 20050727
  Serious: Yes (Hospitalization)
  Sender: FDA-Public Use
  Company Number: HQWYE529011JAN05

PATIENT
  Age: 90 Year
  Sex: Female

DRUGS (8)
  1. CORDARONE [Suspect]
     Indication: ATRIAL FIBRILLATION
     Dosage: 200 MG 1X PER 1 DAY ORAL
     Route: 048
     Dates: start: 20041116, end: 20041207
  2. DIGOXIN [Suspect]
     Dosage: 0.25 MG 1X PER 1 DAY ORAL
     Route: 048
     Dates: start: 20041116, end: 20041122
  3. ZOCOR [Concomitant]
  4. PREVISCAN (FLUINDIONE) [Concomitant]
  5. LASILIX             (FUROSEMIDE) [Concomitant]
  6. BISOPROLOL FUMARATE [Concomitant]
  7. ALLOPURINOL [Concomitant]
  8. ................ [Concomitant]

REACTIONS (9)
  - ARRHYTHMIA [None]
  - ARTHRALGIA [None]
  - CARDIOACTIVE DRUG LEVEL INCREASED [None]
  - DRUG INTERACTION [None]
  - FALL [None]
  - HEAD INJURY [None]
  - INTERNATIONAL NORMALISED RATIO INCREASED [None]
  - PERIORBITAL HAEMATOMA [None]
  - RENAL FAILURE ACUTE [None]
